FAERS Safety Report 6156196-7 (Version None)
Quarter: 2009Q2

REPORT INFORMATION
  Report Type: 
  Country: None (occurrence: None)
  Receive Date: 20090410
  Receipt Date: 20090410
  Transmission Date: 20091009
  Serious: Yes (Other)
  Sender: FDA-Public Use
  Company Number: None

PATIENT
  Age: 41 Year
  Sex: Female
  Weight: 74.8435 kg

DRUGS (2)
  1. LEVAQUIN [Suspect]
     Indication: HYSTERECTOMY
     Dosage: 1 A DAY DAILY PO
     Route: 048
     Dates: start: 20081126, end: 20081130
  2. . [Concomitant]

REACTIONS (12)
  - ARTHRALGIA [None]
  - BLOOD PRESSURE INCREASED [None]
  - DISCOMFORT [None]
  - DIZZINESS [None]
  - EXTRASYSTOLES [None]
  - HYPOAESTHESIA [None]
  - INSOMNIA [None]
  - MIGRAINE [None]
  - NIGHTMARE [None]
  - PAIN IN EXTREMITY [None]
  - PALPITATIONS [None]
  - VISION BLURRED [None]
